FAERS Safety Report 23640992 (Version 2)
Quarter: 2024Q2

REPORT INFORMATION
  Report Type: Spontaneous
  Country: US (occurrence: US)
  Receive Date: 20240318
  Receipt Date: 20240412
  Transmission Date: 20240715
  Serious: No
  Sender: FDA-Public Use
  Company Number: US-NEBO-PC013677

PATIENT
  Age: 20 Year
  Sex: Male

DRUGS (1)
  1. MONOFERRIC [Suspect]
     Active Substance: FERRIC DERISOMALTOSE
     Indication: Product used for unknown indication
     Route: 050

REACTIONS (4)
  - Anxiety [Recovered/Resolved]
  - Stridor [Recovered/Resolved]
  - Abdominal pain [Recovered/Resolved]
  - Obstructive airways disorder [Recovered/Resolved]
